FAERS Safety Report 19661459 (Version 1)
Quarter: 2021Q3

REPORT INFORMATION
  Report Type: Spontaneous
  Country: US (occurrence: US)
  Receive Date: 20210802
  Receipt Date: 20210802
  Transmission Date: 20211014
  Serious: Yes (Life-Threatening, Hospitalization, Other)
  Sender: FDA-Public Use
  Company Number: None

PATIENT
  Age: 66 Year
  Sex: Female
  Weight: 103.42 kg

DRUGS (13)
  1. DOCUSATE SODIUM. [Concomitant]
     Active Substance: DOCUSATE SODIUM
  2. LISINOPRIL. [Concomitant]
     Active Substance: LISINOPRIL
  3. METOPROLOL. [Concomitant]
     Active Substance: METOPROLOL
  4. METFORMIN HCL [Concomitant]
     Active Substance: METFORMIN HYDROCHLORIDE
  5. BIOTIN [Concomitant]
     Active Substance: BIOTIN
  6. GLUCOBURN [Concomitant]
  7. ABILIFY [Suspect]
     Active Substance: ARIPIPRAZOLE
     Indication: BIPOLAR DISORDER
     Dosage: ?          OTHER FREQUENCY:MONTHLY ;?
     Route: 042
     Dates: start: 201911, end: 202008
  8. SYNTHROID [Concomitant]
     Active Substance: LEVOTHYROXINE SODIUM
  9. GLIPIZIDE ER [Concomitant]
     Active Substance: GLIPIZIDE
  10. BUMEX [Concomitant]
     Active Substance: BUMETANIDE
  11. GENTEAL TEARS (MILD) [Concomitant]
     Active Substance: DEXTRAN 70\HYPROMELLOSE 2910 (4000 MPA.S)
  12. ABILIFY [Suspect]
     Active Substance: ARIPIPRAZOLE
     Indication: SCHIZOPHRENIA
     Dosage: ?          OTHER FREQUENCY:MONTHLY ;?
     Route: 042
     Dates: start: 201911, end: 202008
  13. MELATONIN [Concomitant]
     Active Substance: MELATONIN

REACTIONS (8)
  - Speech disorder [None]
  - Skin discolouration [None]
  - Cardiac murmur [None]
  - Cardiac disorder [None]
  - Illness [None]
  - Dyspnoea [None]
  - Dry skin [None]
  - Pneumonia [None]
